FAERS Safety Report 9419677 (Version 1)
Quarter: 2013Q3

REPORT INFORMATION
  Report Type: Spontaneous
  Country: US (occurrence: None)
  Receive Date: 20130723
  Receipt Date: 20130723
  Transmission Date: 20140515
  Serious: Yes (Other)
  Sender: FDA-Public Use
  Company Number: US-1198970

PATIENT
  Sex: Male
  Weight: 87.54 kg

DRUGS (10)
  1. TRAVATAN Z 0.004 % OPHTHALMIC SOLUTION [Suspect]
     Indication: GLAUCOMA
     Route: 047
     Dates: start: 20120712, end: 20121107
  2. NIFEDIPINE XL [Concomitant]
  3. SIMVASTATIN [Concomitant]
  4. OMEPRAZOLE [Concomitant]
  5. GABAPENTIN [Concomitant]
  6. CENTRUM SILVER [Concomitant]
  7. VITAMIN C [Concomitant]
  8. VITAMIN D3 [Concomitant]
  9. VITAMIN B12 [Concomitant]
  10. VITAMIN E [Concomitant]

REACTIONS (4)
  - Corneal erosion [None]
  - Vision blurred [None]
  - Cataract [None]
  - Expired drug administered [None]
